FAERS Safety Report 17654961 (Version 1)
Quarter: 2020Q2

REPORT INFORMATION
  Report Type: Spontaneous
  Country: CA (occurrence: CA)
  Receive Date: 20200410
  Receipt Date: 20200410
  Transmission Date: 20200713
  Serious: Yes (Other)
  Sender: FDA-Public Use
  Company Number: CA-TEVA-2020-CA-1220242

PATIENT
  Age: 82 Year
  Sex: Female

DRUGS (4)
  1. BIFIDOBACTERIUM ANIMALIS SUBSP. LACTIS [Concomitant]
     Active Substance: BIFIDOBACTERIUM ANIMALIS LACTIS
  2. LORAZEPAM. [Suspect]
     Active Substance: LORAZEPAM
     Indication: RASH
     Route: 065
  3. AMLODIPINE BESILATE [Suspect]
     Active Substance: AMLODIPINE BESYLATE
     Indication: PRODUCT USED FOR UNKNOWN INDICATION
     Route: 065
  4. PREDNISONE. [Concomitant]
     Active Substance: PREDNISONE

REACTIONS (6)
  - Drug ineffective for unapproved indication [Unknown]
  - Off label use [Unknown]
  - Rash pustular [Unknown]
  - Dermatitis [Unknown]
  - Product substitution issue [Unknown]
  - Pruritus [Unknown]
